FAERS Safety Report 10181877 (Version 1)
Quarter: 2014Q2

REPORT INFORMATION
  Report Type: Spontaneous
  Country: IL (occurrence: IL)
  Receive Date: 20140519
  Receipt Date: 20140519
  Transmission Date: 20141212
  Serious: Yes (Other)
  Sender: FDA-Public Use
  Company Number: IL-WATSON-2014-10159

PATIENT
  Age: 33 Year
  Sex: Female

DRUGS (4)
  1. HEPARIN SODIUM (UNKNOWN) [Suspect]
     Indication: ANTICOAGULANT THERAPY
     Dosage: UNKNOWN
     Route: 042
  2. ASPIRIN [Concomitant]
     Indication: PRODUCT USED FOR UNKNOWN INDICATION
     Dosage: UNKNOWN
     Route: 065
  3. METOPROLOL [Concomitant]
     Indication: PRODUCT USED FOR UNKNOWN INDICATION
     Dosage: UNKNOWN
     Route: 065
  4. FUROSEMIDE [Concomitant]
     Indication: PRODUCT USED FOR UNKNOWN INDICATION
     Dosage: UNKNOWN
     Route: 065

REACTIONS (2)
  - Retroperitoneal haematoma [Recovered/Resolved]
  - Maternal exposure during pregnancy [Recovered/Resolved]
